FAERS Safety Report 5795625-5 (Version None)
Quarter: 2008Q2

REPORT INFORMATION
  Report Type: 
  Country: None (occurrence: None)
  Receive Date: 20080630
  Receipt Date: 20080624
  Transmission Date: 20081010
  Serious: Yes (Other)
  Sender: FDA-Public Use
  Company Number: FR-MERCK-0806FRA00059

PATIENT
  Age: 37 Year
  Sex: Male

DRUGS (1)
  1. PROPECIA [Suspect]
     Indication: ALOPECIA
     Route: 048
     Dates: start: 20021001, end: 20080117

REACTIONS (4)
  - ASTHENOSPERMIA [None]
  - AZOOSPERMIA [None]
  - INFERTILITY [None]
  - STRESS [None]
